FAERS Safety Report 5401548-3 (Version None)
Quarter: 2007Q3

REPORT INFORMATION
  Report Type: 
  Country: None (occurrence: None)
  Receive Date: 20070731
  Receipt Date: 20070606
  Transmission Date: 20080115
  Serious: Yes (Hospitalization, Other)
  Sender: FDA-Public Use
  Company Number: US-PURDUE-USA_2007_0028415

PATIENT
  Sex: Male

DRUGS (1)
  1. OXYCONTIN [Suspect]
     Indication: BACK PAIN
     Dosage: UNK MG, UNK
     Route: 048
     Dates: start: 19980101, end: 20070213

REACTIONS (6)
  - AMNESIA [None]
  - DELIRIUM TREMENS [None]
  - HOSPITALISATION [None]
  - INSOMNIA [None]
  - TREMOR [None]
  - WEIGHT DECREASED [None]
